FAERS Safety Report 4414237-9 (Version None)
Quarter: 2004Q3

REPORT INFORMATION
  Report Type: 
  Country: None (occurrence: None)
  Receive Date: 20040728
  Receipt Date: 20040710
  Transmission Date: 20050211
  Serious: Yes (Hospitalization)
  Sender: FDA-Public Use
  Company Number: A01200403333

PATIENT
  Age: 73 Year
  Sex: Male

DRUGS (6)
  1. AMIODARONE HCL [Suspect]
     Indication: VENTRICULAR TACHYCARDIA
     Dosage: 100 MG OD
     Route: 048
     Dates: start: 20040202
  2. KERLONE [Suspect]
     Indication: ATRIAL FIBRILLATION
     Dosage: 5 MG QD
     Route: 048
     Dates: start: 20040202
  3. WARFARIN (WARFARIN POTASSIUM) [Concomitant]
  4. ENALAPRIL MALEATE [Concomitant]
  5. ADALAT [Concomitant]
  6. METHYCOBAL (MECOBALAMIN) [Concomitant]

REACTIONS (5)
  - CARDIOMEGALY [None]
  - DIZZINESS [None]
  - HEART RATE DECREASED [None]
  - SICK SINUS SYNDROME [None]
  - SINUS BRADYCARDIA [None]
